FAERS Safety Report 8168195-4 (Version None)
Quarter: 2012Q1

REPORT INFORMATION
  Report Type: 
  Country: None (occurrence: None)
  Receive Date: 20120227
  Receipt Date: 20120222
  Transmission Date: 20120608
  Serious: Yes (Life-Threatening, Other)
  Sender: FDA-Public Use
  Company Number: PHHY2012CH010544

PATIENT
  Sex: Female
  Weight: 80 kg

DRUGS (2)
  1. VOLTAREN [Suspect]
     Indication: ARTHRALGIA
     Dosage: 25 MG, UNK
     Route: 048
     Dates: start: 20120203, end: 20120203
  2. LISINOPRIL [Concomitant]
     Indication: BLOOD PRESSURE INCREASED
     Dosage: 20 MG, QD

REACTIONS (16)
  - SWOLLEN TONGUE [None]
  - RASH GENERALISED [None]
  - SWELLING FACE [None]
  - NAUSEA [None]
  - DIZZINESS [None]
  - SWELLING [None]
  - HYPERSENSITIVITY [None]
  - URTICARIA [None]
  - CIRCULATORY COLLAPSE [None]
  - FALL [None]
  - DYSPNOEA [None]
  - BLOOD PRESSURE DECREASED [None]
  - ALLERGIC OEDEMA [None]
  - FEAR [None]
  - PRURITUS GENERALISED [None]
  - RASH [None]
